FAERS Safety Report 25219545 (Version 2)
Quarter: 2025Q2

REPORT INFORMATION
  Report Type: Report from Study
  Country: GB (occurrence: GB)
  Receive Date: 20250421
  Receipt Date: 20250501
  Transmission Date: 20250716
  Serious: Yes (Hospitalization)
  Sender: ABBVIE
  Company Number: GB-ABBVIE-6232191

PATIENT
  Age: 75 Year
  Sex: Male

DRUGS (2)
  1. CARBIDOPA\LEVODOPA [Suspect]
     Active Substance: CARBIDOPA\LEVODOPA
     Indication: Parkinson^s disease
     Route: 050
  2. CARBIDOPA\LEVODOPA [Suspect]
     Active Substance: CARBIDOPA\LEVODOPA
     Route: 050

REACTIONS (9)
  - Joint dislocation [Recovered/Resolved]
  - Joint dislocation [Recovered/Resolved]
  - Joint dislocation [Unknown]
  - Hypertension [Unknown]
  - Muscular weakness [Unknown]
  - Insomnia [Unknown]
  - Feeding disorder [Unknown]
  - Fluid intake reduced [Unknown]
  - Confusional state [Unknown]

NARRATIVE: CASE EVENT DATE: 20240101
